FAERS Safety Report 20054020 (Version 1)
Quarter: 2021Q4

REPORT INFORMATION
  Report Type: Spontaneous
  Country: US (occurrence: None)
  Receive Date: 20211110
  Receipt Date: 20211110
  Transmission Date: 20220303
  Serious: No
  Sender: FDA-Public Use
  Company Number: None

PATIENT
  Age: 48 Year
  Sex: Female
  Weight: 52.65 kg

DRUGS (7)
  1. .DELTA.8-TETRAHYDROCANNABINOL\HERBALS [Suspect]
     Active Substance: .DELTA.8-TETRAHYDROCANNABINOL\HERBALS
     Indication: Substance use
     Dates: start: 20211031, end: 20211031
  2. LEXAPRO [Concomitant]
     Active Substance: ESCITALOPRAM OXALATE
  3. ACIPHEX [Concomitant]
     Active Substance: RABEPRAZOLE SODIUM
  4. WOMEN^S DAILY VITAMIN [Concomitant]
  5. GLUCOSIMINE/CHONDROINTIN [Concomitant]
  6. FISH OIL [Concomitant]
     Active Substance: FISH OIL
  7. BIOTIN [Concomitant]
     Active Substance: BIOTIN

REACTIONS (5)
  - Vomiting [None]
  - Tremor [None]
  - Dizziness [None]
  - Chest discomfort [None]
  - Aphasia [None]

NARRATIVE: CASE EVENT DATE: 20211031
